FAERS Safety Report 13442192 (Version 2)
Quarter: 2017Q2

REPORT INFORMATION
  Report Type: Report from Study
  Country: GB (occurrence: GB)
  Receive Date: 20170414
  Receipt Date: 20170427
  Transmission Date: 20170830
  Serious: No
  Sender: FDA-Public Use
  Company Number: GB-UCBSA-2017013863

PATIENT
  Sex: Male

DRUGS (1)
  1. CERTOLIZUMAB PEGOL [Suspect]
     Active Substance: CERTOLIZUMAB PEGOL
     Indication: ARTHRITIS

REACTIONS (2)
  - Incorrect product storage [Unknown]
  - Intercepted medication error [Unknown]

NARRATIVE: CASE EVENT DATE: 2017
